FAERS Safety Report 9558745 (Version 1)
Quarter: 2013Q3

REPORT INFORMATION
  Report Type: Spontaneous
  Country: US (occurrence: US)
  Receive Date: 20130926
  Receipt Date: 20130926
  Transmission Date: 20140515
  Serious: No
  Sender: FDA-Public Use
  Company Number: US-BIOGENIDEC-2013BI046618

PATIENT
  Age: 55 Year
  Sex: Female

DRUGS (6)
  1. TECFIDERA [Suspect]
     Indication: MULTIPLE SCLEROSIS
     Route: 048
     Dates: start: 20130504, end: 20130510
  2. TECFIDERA [Suspect]
     Indication: MULTIPLE SCLEROSIS
     Route: 048
     Dates: start: 20130511
  3. NEXIUM [Concomitant]
     Indication: GASTROOESOPHAGEAL REFLUX DISEASE
  4. ASPIRIN [Concomitant]
     Indication: FLUSHING
  5. FOSAMAX [Concomitant]
     Indication: OSTEOPOROSIS
  6. NAPROSEN [Concomitant]
     Indication: PAIN PROPHYLAXIS

REACTIONS (2)
  - Flushing [Recovered/Resolved]
  - Rash pruritic [Not Recovered/Not Resolved]
